FAERS Safety Report 6871237-7 (Version None)
Quarter: 2010Q3

REPORT INFORMATION
  Report Type: 
  Country: None (occurrence: None)
  Receive Date: 20100723
  Receipt Date: 20100713
  Transmission Date: 20110219
  Serious: Yes (Death, Other)
  Sender: FDA-Public Use
  Company Number: JP-PFIZER INC-2010053673

PATIENT
  Age: 57 Year
  Sex: Female
  Weight: 60 kg

DRUGS (15)
  1. AZULFIDINE [Suspect]
     Indication: RHEUMATOID ARTHRITIS
     Dosage: 1000 MG/DAY
     Route: 048
     Dates: start: 20041001, end: 20100327
  2. RHEUMATREX [Suspect]
     Indication: RHEUMATOID ARTHRITIS
     Dosage: 8 MG/DAY TWICE DAILY ON WEDNESDAY AND 4 MG /DAY ONCE DAILY ON THURSDAY
     Route: 048
     Dates: start: 20050601, end: 20100327
  3. PREDNISOLONE [Suspect]
     Dosage: 5 MG, 2X/DAY
     Route: 048
     Dates: start: 20041001, end: 20100327
  4. RIMATIL [Suspect]
     Dosage: 100 MG, 3X/DAY
     Route: 048
     Dates: start: 20090301, end: 20100327
  5. BREDININ [Suspect]
     Dosage: 100 MG ONCE DAILY ON WEDNESDAY ONCE A WEEK
     Route: 048
     Dates: start: 20070401, end: 20100327
  6. REMICADE [Suspect]
     Dosage: 200 MG/DAY ON 26JAN2010, 09FEB2010, AND 09MAR2010
     Route: 042
     Dates: start: 20100126, end: 20100327
  7. TAKEPRON [Concomitant]
     Route: 048
  8. MUCOSTA [Concomitant]
     Dosage: UNK
     Route: 048
     Dates: start: 20041001, end: 20100327
  9. LOXONIN [Concomitant]
     Dosage: UNK
     Route: 048
     Dates: start: 20041201, end: 20100327
  10. ADALAT CC [Concomitant]
     Dosage: UNK
     Route: 048
     Dates: start: 20070601, end: 20100327
  11. CANDESARTAN CILEXETIL [Concomitant]
     Dosage: UNK
     Route: 048
     Dates: start: 20071201, end: 20100327
  12. FOSAMAX [Concomitant]
     Dosage: UNK
     Route: 048
     Dates: start: 20051201, end: 20100327
  13. CELECTOL [Concomitant]
     Dosage: UNK
     Route: 048
     Dates: start: 20081201, end: 20100327
  14. LASIX [Concomitant]
     Dosage: UNK
     Route: 048
     Dates: start: 20081201, end: 20100327
  15. ISCOTIN [Concomitant]
     Dosage: UNK
     Route: 048
     Dates: start: 20091101, end: 20100327

REACTIONS (4)
  - BLOOD LACTATE DEHYDROGENASE INCREASED [None]
  - HEPATIC ENZYME INCREASED [None]
  - LYMPHOMA [None]
  - LYMPHOPROLIFERATIVE DISORDER [None]
